FAERS Safety Report 8363841-4 (Version None)
Quarter: 2012Q2

REPORT INFORMATION
  Report Type: 
  Country: None (occurrence: None)
  Receive Date: 20120516
  Receipt Date: 20120103
  Transmission Date: 20120825
  Serious: No
  Sender: FDA-Public Use
  Company Number: US-ALEXION-A201200038

PATIENT
  Sex: Male

DRUGS (6)
  1. SOLIRIS [Suspect]
     Indication: HAEMOLYTIC URAEMIC SYNDROME
     Dosage: 960 CC, QW
     Route: 042
     Dates: start: 20111215
  2. B COMPLEX WITH VITAMIN C [Concomitant]
     Dosage: 1 TAB QD
  3. BISOPROLOL FUMARATE [Concomitant]
     Indication: HYPERTENSION
     Dosage: 7.5 MG, QD PRN
  4. ZEMPLAR [Concomitant]
     Dosage: 2 MCG, 3 X WEEK
  5. SOLIRIS [Suspect]
     Dosage: 1200 CC, UNK
     Route: 042
  6. EPOETIN ALFA [Concomitant]
     Dosage: UNK, 1 X WEEK

REACTIONS (2)
  - RHINORRHOEA [None]
  - NASOPHARYNGITIS [None]
